FAERS Safety Report 5455057-6 (Version None)
Quarter: 2007Q3

REPORT INFORMATION
  Report Type: 
  Country: None (occurrence: None)
  Receive Date: 20070913
  Receipt Date: 20070904
  Transmission Date: 20080115
  Serious: Yes (Hospitalization)
  Sender: FDA-Public Use
  Company Number: DSM-2007-00665

PATIENT
  Age: 73 Year
  Sex: Male

DRUGS (9)
  1. ALTEIS (OLMESARTAN MEDOXOMIL) (TABLET) (OLMESARTAN MEDOXOMIL) [Suspect]
     Dosage: (1 IN 1 D), ORAL
     Route: 048
     Dates: start: 20070401
  2. ENALAPRIL (ENALAPRIL) (ENALAPRIL) [Suspect]
     Dosage: ORAL
     Route: 048
     Dates: start: 20050401, end: 20070401
  3. HYPERIUM (RILMENIDINE) (RILMENIDINE) [Suspect]
     Dosage: ORAL
     Route: 048
     Dates: start: 20051201, end: 20070401
  4. XATRAL (ALBUZOSIN) (ALFUZOSIN) [Suspect]
     Dosage: ORAL
     Route: 048
     Dates: start: 20051201, end: 20070401
  5. ASPEGIC (ACETYLSALICYLATE LYSINE) (ACETYLSALICYLATE LYSINE) [Concomitant]
  6. LERCAN (LERCANIDIPINE HYDROCHLORIDE) (LERCANIDIPINE HYDROCHLORIDE) [Concomitant]
  7. TAHOR (ATORVASTATIN CALCIUM) (ATORVASTATIN CALCIUM) [Concomitant]
  8. UMULINE (INSULIN HUMAN ZINC SUSPENSION) (INSULIN HUMAN ZINC SUSPENSION [Concomitant]
  9. SPIRONOLACTONE + ALTIZIDE (SPIRONOLACTONE, ALTIZIDE) (SPIRONOLACTONE, [Concomitant]

REACTIONS (5)
  - OEDEMA PERIPHERAL [None]
  - OMPHALITIS [None]
  - PRURITUS [None]
  - PSORIASIS [None]
  - TOXIC SKIN ERUPTION [None]
